FAERS Safety Report 5062070-X (Version None)
Quarter: 2006Q3

REPORT INFORMATION
  Report Type: 
  Country: None (occurrence: None)
  Receive Date: 20060726
  Receipt Date: 20051227
  Transmission Date: 20061208
  Serious: Yes (Hospitalization)
  Sender: FDA-Public Use
  Company Number: US-ROCHE-429993

PATIENT
  Age: 25 Year
  Sex: Female
  Weight: 59 kg

DRUGS (10)
  1. ACCUTANE [Suspect]
     Indication: ACNE
     Route: 048
     Dates: start: 19970315, end: 19970415
  2. ACCUTANE [Suspect]
     Route: 048
     Dates: start: 19970416, end: 19970506
  3. ACCUTANE [Suspect]
     Route: 048
     Dates: start: 19970507, end: 19980115
  4. ACCUTANE [Suspect]
     Route: 048
     Dates: start: 19980623, end: 19980913
  5. ACCUTANE [Suspect]
     Route: 048
     Dates: start: 19980914
  6. ACCUTANE [Suspect]
     Route: 048
     Dates: start: 19990407, end: 19990915
  7. ACCUTANE [Suspect]
     Route: 048
     Dates: start: 19991119, end: 20000714
  8. ACCUTANE [Suspect]
     Route: 048
     Dates: start: 20000715, end: 20001005
  9. ACCUTANE [Suspect]
     Route: 048
     Dates: start: 20010405, end: 20010716
  10. ACCUTANE [Suspect]
     Route: 048
     Dates: start: 20010814, end: 20011204

REACTIONS (33)
  - AGGRESSION [None]
  - ANGER [None]
  - ANXIETY [None]
  - ARTHRALGIA [None]
  - ARTHRITIS [None]
  - BLOOD CHOLESTEROL INCREASED [None]
  - CHOLECYSTECTOMY [None]
  - CHRONIC FATIGUE SYNDROME [None]
  - COLITIS [None]
  - DEPRESSION [None]
  - DIZZINESS [None]
  - DYSPNOEA [None]
  - EMOTIONAL DISTRESS [None]
  - EPSTEIN-BARR VIRUS INFECTION [None]
  - FOLLICULITIS [None]
  - GASTROINTESTINAL DISORDER [None]
  - GASTROOESOPHAGEAL REFLUX DISEASE [None]
  - HALLUCINATION, VISUAL [None]
  - HEPATIC ENZYME INCREASED [None]
  - HERPES SIMPLEX [None]
  - HIDRADENITIS [None]
  - HYPERTRIGLYCERIDAEMIA [None]
  - INFLAMMATORY BOWEL DISEASE [None]
  - LOCALISED INFECTION [None]
  - LYMPHADENOPATHY [None]
  - MOOD ALTERED [None]
  - NIGHT BLINDNESS [None]
  - OESOPHAGITIS [None]
  - PANCREATITIS [None]
  - PSYCHOTIC DISORDER [None]
  - SKIN PAPILLOMA [None]
  - VISION BLURRED [None]
  - WEIGHT INCREASED [None]
